FAERS Safety Report 5105361-6 (Version None)
Quarter: 2006Q3

REPORT INFORMATION
  Report Type: 
  Country: None (occurrence: None)
  Receive Date: 20060731
  Receipt Date: 20060329
  Transmission Date: 20061208
  Serious: Yes (Hospitalization)
  Sender: FDA-Public Use
  Company Number: US-JNJFOC-20060307820

PATIENT
  Age: 46 Year
  Sex: Female

DRUGS (6)
  1. RISPERDAL [Suspect]
     Indication: BIPOLAR I DISORDER
     Dosage: 0.25 MG
     Dates: start: 20030101
  2. TOPAMAX [Suspect]
     Indication: DRUG THERAPY
     Dates: start: 20030101
  3. DIURETIC UNSPECIFIED (DIURETICS) [Suspect]
     Indication: FLUID RETENTION
  4. DIAZEPAM [Concomitant]
  5. ULTRAM (TRAMADOL/APAP) UNSPECIFIED [Concomitant]
  6. ZOLOFT [Concomitant]

REACTIONS (4)
  - BLOOD POTASSIUM DECREASED [None]
  - DEHYDRATION [None]
  - FATIGUE [None]
  - OEDEMA PERIPHERAL [None]
